FAERS Safety Report 13349962 (Version 1)
Quarter: 2017Q1

REPORT INFORMATION
  Report Type: Spontaneous
  Country: US (occurrence: US)
  Receive Date: 20170319
  Receipt Date: 20170319
  Transmission Date: 20170429
  Serious: Yes (Hospitalization, Disabling, Other)
  Sender: FDA-Public Use
  Company Number: None

PATIENT
  Age: 43 Year
  Sex: Female
  Weight: 60.75 kg

DRUGS (3)
  1. TAXOL [Suspect]
     Active Substance: PACLITAXEL
     Indication: BREAST CANCER
     Dosage: ?          OTHER FREQUENCY:WEEKLY;?
     Route: 042
  2. LYRICA [Concomitant]
     Active Substance: PREGABALIN
  3. FENTANYL. [Concomitant]
     Active Substance: FENTANYL

REACTIONS (4)
  - Activities of daily living impaired [None]
  - Neuropathy peripheral [None]
  - Neurogenic bladder [None]
  - Disability [None]

NARRATIVE: CASE EVENT DATE: 20080526
